FAERS Safety Report 7360255-0 (Version None)
Quarter: 2011Q1

REPORT INFORMATION
  Report Type: 
  Country: None (occurrence: None)
  Receive Date: 20110310
  Receipt Date: 20110228
  Transmission Date: 20110831
  Serious: Yes (Death)
  Sender: FDA-Public Use
  Company Number: 2009AC000293

PATIENT
  Age: 80 Year
  Sex: Male
  Weight: 100.2449 kg

DRUGS (13)
  1. ADVAIR DISKUS 100/50 [Concomitant]
  2. PROTONIX [Concomitant]
  3. DIGOXIN [Suspect]
     Indication: PRODUCT USED FOR UNKNOWN INDICATION
     Dosage: .125 MG, UNKNOWN, PO
     Route: 048
     Dates: start: 20061201, end: 20080329
  4. ALPRAZOLAM [Concomitant]
  5. DUNEB [Concomitant]
  6. DILTIAZEM [Concomitant]
  7. ENALAPRIL MALEATE [Concomitant]
  8. FUROSEMIDE [Concomitant]
  9. AVINZA [Concomitant]
  10. DIGOXIN [Suspect]
     Indication: PRODUCT USED FOR UNKNOWN INDICATION
     Dosage: 0.125 MG, QOD, PO
     Route: 048
     Dates: start: 20061001, end: 20080101
  11. CARDIZEM [Concomitant]
  12. XANAX [Concomitant]
  13. ASPIRIN [Concomitant]

REACTIONS (23)
  - INJURY [None]
  - CARDIOACTIVE DRUG LEVEL DECREASED [None]
  - CYANOSIS [None]
  - DILATATION ATRIAL [None]
  - CHRONIC OBSTRUCTIVE PULMONARY DISEASE [None]
  - ACUTE MYOCARDIAL INFARCTION [None]
  - DIZZINESS [None]
  - ARTERIOSCLEROSIS CORONARY ARTERY [None]
  - DILATATION VENTRICULAR [None]
  - MITRAL VALVE CALCIFICATION [None]
  - BLOOD CREATINE INCREASED [None]
  - TACHYCARDIA [None]
  - ATRIAL FIBRILLATION [None]
  - HEART RATE IRREGULAR [None]
  - CONDITION AGGRAVATED [None]
  - PAIN [None]
  - HEADACHE [None]
  - CARDIO-RESPIRATORY ARREST [None]
  - CAROTID ARTERY STENOSIS [None]
  - TRICUSPID VALVE INCOMPETENCE [None]
  - BLOOD PRESSURE INCREASED [None]
  - AORTIC VALVE SCLEROSIS [None]
  - PULMONARY HYPERTENSION [None]
